FAERS Safety Report 5162881-6 (Version None)
Quarter: 2006Q4

REPORT INFORMATION
  Report Type: 
  Country: None (occurrence: None)
  Receive Date: 20061121
  Receipt Date: 20061109
  Transmission Date: 20070319
  Serious: Yes (Death, Other)
  Sender: FDA-Public Use
  Company Number: 2006BH013775

PATIENT
  Age: 51 Year
  Sex: Male

DRUGS (1)
  1. DIANEAL [Suspect]
     Indication: PERITONEAL DIALYSIS
     Dosage: IP
     Route: 033

REACTIONS (3)
  - FUNGAL PERITONITIS [None]
  - SEPSIS [None]
  - TINEA PEDIS [None]
